FAERS Safety Report 23603162 (Version 8)
Quarter: 2024Q3

REPORT INFORMATION
  Report Type: Spontaneous
  Country: US (occurrence: US)
  Receive Date: 20240307
  Receipt Date: 20240828
  Transmission Date: 20241017
  Serious: Yes (Disabling, Other)
  Sender: NOVARTIS
  Company Number: US-002147023-NVSC2024US047926

PATIENT
  Age: 54 Year

DRUGS (4)
  1. COSENTYX [Suspect]
     Active Substance: SECUKINUMAB
     Indication: Ankylosing spondylitis
     Dosage: UNK
     Route: 065
  2. COSENTYX [Suspect]
     Active Substance: SECUKINUMAB
     Indication: Hidradenitis
  3. HUMIRA [Suspect]
     Active Substance: ADALIMUMAB
     Indication: Product used for unknown indication
     Dosage: UNK
     Route: 065
  4. ENBREL [Suspect]
     Active Substance: BENZYL ALCOHOL\ETANERCEPT
     Indication: Product used for unknown indication
     Dosage: UNK
     Route: 065

REACTIONS (10)
  - Ankylosing spondylitis [Unknown]
  - Pain [Unknown]
  - Gait inability [Unknown]
  - General physical health deterioration [Unknown]
  - Nervousness [Unknown]
  - Feeling abnormal [Unknown]
  - Anxiety [Unknown]
  - Skin papilloma [Unknown]
  - Muscle tightness [Unknown]
  - Drug ineffective [Unknown]
